FAERS Safety Report 19797754 (Version 1)
Quarter: 2021Q3

REPORT INFORMATION
  Report Type: Spontaneous
  Country: US (occurrence: US)
  Receive Date: 20210907
  Receipt Date: 20210907
  Transmission Date: 20211014
  Serious: No
  Sender: FDA-Public Use
  Company Number: US-PFIZER INC-2021314253

PATIENT
  Age: 4 Year

DRUGS (1)
  1. EUCRISA [Suspect]
     Active Substance: CRISABOROLE
     Dosage: APPLY ON ARMS, BACK AND LEGS (2X/DAY) TWICE DAILY
     Route: 061

REACTIONS (2)
  - Sensitivity to weather change [Unknown]
  - Condition aggravated [Unknown]
